FAERS Safety Report 4321096-1 (Version None)
Quarter: 2004Q1

REPORT INFORMATION
  Report Type: 
  Country: None (occurrence: None)
  Receive Date: 20040322
  Receipt Date: 20040322
  Transmission Date: 20041129
  Serious: No
  Sender: FDA-Public Use
  Company Number: None

PATIENT
  Age: 24 Year
  Sex: Female
  Weight: 63.5036 kg

DRUGS (1)
  1. DEPO-PROVERA [Suspect]
     Dosage: 1 SHOT 3 MONTHS SUBCUTANEOUS
     Route: 058

REACTIONS (3)
  - FATIGUE [None]
  - MENORRHAGIA [None]
  - PAIN [None]
